FAERS Safety Report 19827740 (Version 1)
Quarter: 2021Q3

REPORT INFORMATION
  Report Type: Other
  Country: US (occurrence: US)
  Receive Date: 20210914
  Receipt Date: 20210914
  Transmission Date: 20211014
  Serious: Yes (Other)
  Sender: FDA-Public Use
  Company Number: US-ROCHE-2907621

PATIENT
  Sex: Male

DRUGS (2)
  1. HEMLIBRA [Suspect]
     Active Substance: EMICIZUMAB-KXWH
     Indication: HAEMOPHILIA
     Dosage: INJECT 480MG (3 VIALS OF 60MG AND 2 VIALS OF 150MG) SUBCUTANEOUSLY EVERY 28 DAY(S)
     Route: 058
  2. HEMLIBRA [Suspect]
     Active Substance: EMICIZUMAB-KXWH
     Indication: FACTOR VIII DEFICIENCY
     Dosage: INJECT 480MG (3 VIALS OF 60MG AND 2 VIALS OF 150MG) SUBCUTANEOUSLY EVERY 28 DAY(S)
     Route: 058

REACTIONS (1)
  - Seizure [Unknown]
